FAERS Safety Report 4272933-0 (Version None)
Quarter: 2004Q1

REPORT INFORMATION
  Report Type: 
  Country: None (occurrence: None)
  Receive Date: 20040114
  Receipt Date: 20040102
  Transmission Date: 20041129
  Serious: Yes (Life-Threatening, Hospitalization)
  Sender: FDA-Public Use
  Company Number: BRA-2002-006333

PATIENT
  Age: 41 Year
  Sex: Female
  Weight: 93 kg

DRUGS (5)
  1. BETAFERON (INTERFERON BETA-1B) INJECTION, 250UG [Suspect]
     Indication: MULTIPLE SCLEROSIS
     Dosage: 8 MIU, EVERY 2D, SUBCUTANEOUS
     Route: 058
     Dates: start: 20001101
  2. MITOXANTRONE(MITOXANTRONE)INJECTION [Concomitant]
  3. PROZAC [Concomitant]
  4. ROHYPNOL(FLUNITRAZEPAM) [Concomitant]
  5. OLCADIL(CLOXAZOLAM) [Concomitant]

REACTIONS (11)
  - CARDIAC ARREST [None]
  - COMA [None]
  - HEART VALVE OPERATION [None]
  - HYPERSENSITIVITY [None]
  - INFLUENZA LIKE ILLNESS [None]
  - LEUKOPENIA [None]
  - MULTIPLE SCLEROSIS RELAPSE [None]
  - PULMONARY EMBOLISM [None]
  - PULMONARY OEDEMA [None]
  - RESPIRATORY FAILURE [None]
  - THROMBOSIS [None]
